FAERS Safety Report 4528519-3 (Version None)
Quarter: 2004Q4

REPORT INFORMATION
  Report Type: 
  Country: None (occurrence: None)
  Receive Date: 20041216
  Receipt Date: 20040407
  Transmission Date: 20050328
  Serious: No
  Sender: FDA-Public Use
  Company Number: US-BRISTOL-MYERS SQUIBB COMPANY-12554309

PATIENT
  Age: 46 Year
  Sex: Female
  Weight: 70 kg

DRUGS (4)
  1. CHOLESTYRAMINE [Suspect]
     Dosage: THERAPY WAS TAKEN FOR 2 MONTHS STARTING FEB 2003, STOPPED, AND THEN RESTARTED 01-APR-2004
     Route: 048
     Dates: start: 20030201
  2. PROZAC [Concomitant]
  3. VITAMIN C [Concomitant]
  4. MULTI-VITAMIN [Concomitant]

REACTIONS (2)
  - DYSPEPSIA [None]
  - PARAESTHESIA [None]
